FAERS Safety Report 5727802-3 (Version None)
Quarter: 2008Q2

REPORT INFORMATION
  Report Type: 
  Country: None (occurrence: None)
  Receive Date: 20080501
  Receipt Date: 20071018
  Transmission Date: 20081010
  Serious: Yes (Life-Threatening, Hospitalization)
  Sender: FDA-Public Use
  Company Number: PHEH2007US12315

PATIENT
  Age: 56 Year
  Sex: Female
  Weight: 87.1 kg

DRUGS (1)
  1. LOTREL [Suspect]
     Indication: HYPERTENSION
     Dosage: 5/40 MG, QD, ORAL
     Route: 048
     Dates: start: 20070515, end: 20070904

REACTIONS (3)
  - ANGIOEDEMA [None]
  - LIP SWELLING [None]
  - SWOLLEN TONGUE [None]
